FAERS Safety Report 8300013-3 (Version None)
Quarter: 2012Q2

REPORT INFORMATION
  Report Type: 
  Country: None (occurrence: None)
  Receive Date: 20120420
  Receipt Date: 20120412
  Transmission Date: 20120825
  Serious: No
  Sender: FDA-Public Use
  Company Number: US-BIOGENIDEC-2012BI013124

PATIENT
  Sex: Female

DRUGS (1)
  1. TYSABRI [Suspect]
     Indication: MULTIPLE SCLEROSIS
     Route: 042
     Dates: start: 20110726

REACTIONS (6)
  - SEASONAL ALLERGY [None]
  - CONFUSIONAL STATE [None]
  - DIZZINESS [None]
  - PANIC ATTACK [None]
  - GAIT DISTURBANCE [None]
  - FATIGUE [None]
